FAERS Safety Report 9356213 (Version 3)
Quarter: 2014Q2

REPORT INFORMATION
  Report Type: Spontaneous
  Country: US (occurrence: US)
  Receive Date: 20130619
  Receipt Date: 20140416
  Transmission Date: 20141212
  Serious: Yes (Death)
  Sender: FDA-Public Use
  Company Number: US-MERCK-1306USA007331

PATIENT
  Age: 48 Year
  Sex: Male
  Weight: 72.56 kg

DRUGS (3)
  1. SINGULAIR [Suspect]
     Indication: ASTHMA
     Dosage: 10 MG TABLET, DAILY
     Route: 048
     Dates: start: 201104
  2. ADVAIR [Concomitant]
     Dosage: 500/50
  3. SPIRIVA [Concomitant]
     Dosage: UNK

REACTIONS (4)
  - Completed suicide [Fatal]
  - Mental disorder [Unknown]
  - Depression [Unknown]
  - Thinking abnormal [Unknown]
